FAERS Safety Report 8573629-7 (Version None)
Quarter: 2012Q3

REPORT INFORMATION
  Report Type: 
  Country: None (occurrence: None)
  Receive Date: 20120806
  Receipt Date: 20120730
  Transmission Date: 20120928
  Serious: Yes (Hospitalization)
  Sender: FDA-Public Use
  Company Number: DE-UCBSA-055108

PATIENT
  Sex: Female
  Weight: 108 kg

DRUGS (4)
  1. IBUPROFEN [Concomitant]
     Indication: RHEUMATOID ARTHRITIS
     Route: 048
  2. METHOTREXATE [Concomitant]
     Indication: RHEUMATOID ARTHRITIS
     Route: 048
     Dates: start: 19960101
  3. CERTOLIZUMAB PEGOL [Suspect]
     Indication: RHEUMATOID ARTHRITIS
     Dosage: NO OF DOSES RECEIVED:19
     Route: 058
     Dates: start: 20110629, end: 20120712
  4. NEO-MERCAZOLE TAB [Concomitant]

REACTIONS (2)
  - VOCAL CORD CYST [None]
  - LARYNGEAL OPERATION [None]
